FAERS Safety Report 12505377 (Version 3)
Quarter: 2016Q3

REPORT INFORMATION
  Report Type: Spontaneous
  Country: US (occurrence: US)
  Receive Date: 20160628
  Receipt Date: 20160825
  Transmission Date: 20161109
  Serious: Yes (Hospitalization, Other)
  Sender: FDA-Public Use
  Company Number: PHEH2016US015573

PATIENT
  Age: 82 Year
  Sex: Female
  Weight: 55.45 kg

DRUGS (20)
  1. LASIX [Concomitant]
     Active Substance: FUROSEMIDE
     Indication: PRODUCT USED FOR UNKNOWN INDICATION
     Dosage: 20 MG, QD
     Route: 048
  2. METRONIDAZOL//METRONIDAZOLE [Concomitant]
     Indication: PRODUCT USED FOR UNKNOWN INDICATION
     Route: 065
  3. ONDANSETRON [Concomitant]
     Active Substance: ONDANSETRON
     Indication: NAUSEA
     Dosage: 4 MG, Q8H
     Route: 048
  4. DOCUSATE SODIUM. [Concomitant]
     Active Substance: DOCUSATE SODIUM
     Indication: PRODUCT USED FOR UNKNOWN INDICATION
     Dosage: 100 MG, BID, AT BEDTIME, AS NEEDED
     Route: 048
  5. SUTENT [Suspect]
     Active Substance: SUNITINIB MALATE
     Indication: GASTROINTESTINAL STROMAL TUMOUR
     Dosage: 50 MG, QD
     Route: 048
     Dates: start: 20160501, end: 20160510
  6. SUTENT [Suspect]
     Active Substance: SUNITINIB MALATE
     Dosage: 50 MG, QD
     Route: 048
     Dates: start: 20160519, end: 20160609
  7. PHENERGAN [Concomitant]
     Active Substance: PROMETHAZINE HYDROCHLORIDE
     Indication: PRODUCT USED FOR UNKNOWN INDICATION
     Dosage: 25 MG, PRN
     Route: 048
  8. IRON [Concomitant]
     Active Substance: IRON
     Indication: PRODUCT USED FOR UNKNOWN INDICATION
     Dosage: 325 MG, BID
     Route: 048
  9. NYSTATIN. [Concomitant]
     Active Substance: NYSTATIN
     Indication: PRODUCT USED FOR UNKNOWN INDICATION
     Dosage: 5 ML, QID (100000UNIT/ML)
     Route: 048
  10. CIPROFLOXACIN. [Concomitant]
     Active Substance: CIPROFLOXACIN
     Indication: PRODUCT USED FOR UNKNOWN INDICATION
     Route: 065
  11. MELATONIN [Concomitant]
     Active Substance: MELATONIN
     Indication: PRODUCT USED FOR UNKNOWN INDICATION
     Dosage: 3 MG, UNK
     Route: 065
  12. THERA-M [Concomitant]
     Indication: PRODUCT USED FOR UNKNOWN INDICATION
     Route: 065
  13. PEPCID [Concomitant]
     Active Substance: FAMOTIDINE
     Indication: PRODUCT USED FOR UNKNOWN INDICATION
     Dosage: 20 MG, BID
     Route: 048
  14. VITAMIN C [Concomitant]
     Active Substance: ASCORBIC ACID
     Indication: PRODUCT USED FOR UNKNOWN INDICATION
     Dosage: 500 MG, UNK
     Route: 065
  15. GLEEVEC [Suspect]
     Active Substance: IMATINIB MESYLATE
     Indication: GASTROINTESTINAL STROMAL TUMOUR
     Dosage: 400 MG, QD
     Route: 048
     Dates: start: 201508, end: 20160427
  16. OMEPRAZOLE. [Concomitant]
     Active Substance: OMEPRAZOLE
     Indication: PRODUCT USED FOR UNKNOWN INDICATION
     Dosage: 40 MG, QD, BEFORE MEAL
     Route: 048
  17. ACIDOPHILUS                        /08551901/ [Concomitant]
     Active Substance: MINERALS\PROBIOTICS NOS\VITAMINS
     Indication: PRODUCT USED FOR UNKNOWN INDICATION
     Route: 065
  18. MIRALAX [Concomitant]
     Active Substance: POLYETHYLENE GLYCOL 3350
     Indication: PRODUCT USED FOR UNKNOWN INDICATION
     Dosage: 17 G, QD, 17 G/DOSEMIXED WITH 8 OZ WATER, JUICE, SODA, ETC
     Route: 048
  19. ZOFRAN [Concomitant]
     Active Substance: ONDANSETRON HYDROCHLORIDE
     Indication: PRODUCT USED FOR UNKNOWN INDICATION
     Dosage: 4 MG, PRN
     Route: 048
  20. ACETAMINOPHEN. [Concomitant]
     Active Substance: ACETAMINOPHEN
     Indication: PRODUCT USED FOR UNKNOWN INDICATION
     Dosage: 2 DF, Q6H, AS NEEDED
     Route: 048

REACTIONS (34)
  - Lymphadenopathy [Unknown]
  - Asthenia [Unknown]
  - Hyponatraemia [Unknown]
  - Drug ineffective [Unknown]
  - Tenderness [Unknown]
  - Malignant neoplasm progression [Unknown]
  - Iron deficiency anaemia [Unknown]
  - Oedema peripheral [Unknown]
  - Flushing [Unknown]
  - Vomiting [Unknown]
  - Pelvic abscess [Unknown]
  - Gastrointestinal wall thickening [Unknown]
  - Abdominal mass [Unknown]
  - Hepatic lesion [Unknown]
  - Urinary tract infection [Unknown]
  - Gastrooesophageal reflux disease [Unknown]
  - Metastases to liver [Unknown]
  - Visual acuity tests abnormal [Unknown]
  - Pneumoperitoneum [Unknown]
  - Ascites [Unknown]
  - Cellulitis [Unknown]
  - Thrombocytopenia [Recovering/Resolving]
  - Gastrointestinal stromal tumour [Unknown]
  - Metastases to abdominal cavity [Unknown]
  - Oedema [Unknown]
  - Fatigue [Unknown]
  - Vision blurred [Unknown]
  - Intestinal perforation [Recovering/Resolving]
  - Gastrointestinal perforation [Unknown]
  - Abdominal pain [Recovering/Resolving]
  - Leukopenia [Recovering/Resolving]
  - Abdominal distension [Unknown]
  - Peritonitis [Unknown]
  - Appendix disorder [Unknown]

NARRATIVE: CASE EVENT DATE: 20150827
